FAERS Safety Report 5652260-7 (Version None)
Quarter: 2008Q1

REPORT INFORMATION
  Report Type: 
  Country: None (occurrence: None)
  Receive Date: 20080305
  Receipt Date: 20080212
  Transmission Date: 20080703
  Serious: No
  Sender: FDA-Public Use
  Company Number: US-BOEHRINGER INGELHEIM GMBH, GERMANY-2008-BP-02219BP

PATIENT
  Sex: Male

DRUGS (2)
  1. ZANTAC 75 [Suspect]
     Indication: DYSPEPSIA
     Route: 048
  2. ZANTAC 75 [Suspect]

REACTIONS (2)
  - DRUG INEFFECTIVE [None]
  - DRUG INTOLERANCE [None]
